FAERS Safety Report 16087262 (Version 1)
Quarter: 2019Q1

REPORT INFORMATION
  Report Type: Spontaneous
  Country: JP (occurrence: JP)
  Receive Date: 20190319
  Receipt Date: 20190319
  Transmission Date: 20190418
  Serious: Yes (Hospitalization, Other)
  Sender: FDA-Public Use
  Company Number: JP-BRISTOL-MYERS SQUIBB COMPANY-BMS-2019-003037

PATIENT
  Age: 45 Year
  Sex: Female

DRUGS (2)
  1. KENACORT-A [Suspect]
     Active Substance: TRIAMCINOLONE
     Indication: OSTEOARTHRITIS
     Dosage: 40 MG, UNK
     Route: 014
     Dates: end: 20150725
  2. RINDERON V [Suspect]
     Active Substance: BETAMETHASONE VALERATE
     Indication: OSTEOARTHRITIS
     Dosage: 2.5 MG, UNK
     Route: 014

REACTIONS (4)
  - Skeletal injury [Unknown]
  - Bursitis infective [Unknown]
  - Arthralgia [Recovered/Resolved]
  - Staphylococcus test positive [Unknown]

NARRATIVE: CASE EVENT DATE: 20150725
